FAERS Safety Report 18983190 (Version 1)
Quarter: 2021Q1

REPORT INFORMATION
  Report Type: Spontaneous
  Country: BR (occurrence: BR)
  Receive Date: 20210308
  Receipt Date: 20210308
  Transmission Date: 20210420
  Serious: Yes (Other)
  Sender: FDA-Public Use
  Company Number: BR-PURDUE-USA-2021-0218515

PATIENT
  Age: 42 Year
  Sex: Male

DRUGS (9)
  1. OMEGA 3                            /01333901/ [Concomitant]
     Active Substance: FISH OIL\TOCOPHEROL
     Indication: PRODUCT USED FOR UNKNOWN INDICATION
     Route: 048
  2. PREGABALIN. [Concomitant]
     Active Substance: PREGABALIN
     Indication: PRODUCT USED FOR UNKNOWN INDICATION
     Dosage: 3 DF, DAILY
     Route: 048
  3. RESTIVA [Suspect]
     Active Substance: BUPRENORPHINE
     Dosage: 1 PATCH, WEEKLY (STRENGTH 20 MG)
     Route: 062
  4. TRAVOPROST. [Concomitant]
     Active Substance: TRAVOPROST
     Indication: PRODUCT USED FOR UNKNOWN INDICATION
     Dosage: UNK, NOCTE
     Route: 031
  5. VITAMIN B [Concomitant]
     Active Substance: VITAMIN B
     Indication: PRODUCT USED FOR UNKNOWN INDICATION
     Route: 048
  6. RESTIVA [Suspect]
     Active Substance: BUPRENORPHINE
     Dosage: 15 MCG, Q1H (15 MG PATCH) ONE PATCH WEEKLY
     Route: 065
  7. MAGNESIUM [Concomitant]
     Active Substance: MAGNESIUM
     Indication: PRODUCT USED FOR UNKNOWN INDICATION
     Route: 065
  8. RESTIVA [Suspect]
     Active Substance: BUPRENORPHINE
     Indication: ARTHRALGIA
     Dosage: 5 MCG, Q1H (STRENGTH 5 MG), ONE PATCH WEEKLY
     Route: 065
  9. RESTIVA [Suspect]
     Active Substance: BUPRENORPHINE
     Indication: NEURALGIA
     Dosage: 10 MCG, Q1H (10 MG PATCH) ONE PATCH WEEKLY
     Route: 065

REACTIONS (5)
  - Application site injury [Unknown]
  - Product adhesion issue [Unknown]
  - Product contamination microbial [Unknown]
  - Therapeutic product effect incomplete [Unknown]
  - Application site swelling [Unknown]
